FAERS Safety Report 19356809 (Version 2)
Quarter: 2021Q3

REPORT INFORMATION
  Report Type: Report from Study
  Country: JP (occurrence: JP)
  Receive Date: 20210601
  Receipt Date: 20210712
  Transmission Date: 20211014
  Serious: Yes (Hospitalization, Other)
  Sender: FDA-Public Use
  Company Number: NVSJ2020JP005720

PATIENT
  Age: 14 Year
  Sex: Female
  Weight: 52.5 kg

DRUGS (8)
  1. KYMRIAH [Suspect]
     Active Substance: TISAGENLECLEUCEL
     Indication: ACUTE LYMPHOCYTIC LEUKAEMIA
     Dosage: UNK
     Route: 041
     Dates: start: 20200601
  2. FLUDARABINE [Concomitant]
     Active Substance: FLUDARABINE PHOSPHATE
     Indication: CHEMOTHERAPY
     Dosage: 172 MG/M2 (TOTAL DOSAGE OF FLUDARABINE+ENDOXAN)
     Route: 065
     Dates: start: 20200525
  3. METHYLPREDNISOLONE. [Suspect]
     Active Substance: METHYLPREDNISOLONE
     Indication: PRODUCT USED FOR UNKNOWN INDICATION
     Dosage: UNK
     Route: 065
  4. DEXMEDETOMIDINA [DEXMEDETOMIDINE] [Suspect]
     Active Substance: DEXMEDETOMIDINE
     Indication: TONIC CONVULSION
     Dosage: UNK
     Route: 042
  5. ENDOXAN [Concomitant]
     Active Substance: CYCLOPHOSPHAMIDE
     Indication: CHEMOTHERAPY
     Dosage: 172 MG/M2 (TOTAL DOSAGE OF FLUDARABINE+ENDOXAN)
     Route: 065
     Dates: start: 20200525
  6. MIDAZOLAM INJECTION [Suspect]
     Active Substance: MIDAZOLAM HYDROCHLORIDE
     Indication: TONIC CONVULSION
     Dosage: UNK
     Route: 065
  7. DIAZEPAM. [Suspect]
     Active Substance: DIAZEPAM
     Indication: TONIC CONVULSION
     Dosage: UNK
     Route: 065
  8. TOCILIZUMAB. [Suspect]
     Active Substance: TOCILIZUMAB
     Indication: CYTOKINE RELEASE SYNDROME
     Dosage: TOOK FOR 4 TIMES
     Route: 065

REACTIONS (23)
  - Pyrexia [Recovering/Resolving]
  - Urine output decreased [Recovered/Resolved]
  - Vomiting [Unknown]
  - Nervous system disorder [Recovered/Resolved]
  - Tonic convulsion [Recovered/Resolved]
  - Cerebral atrophy [Recovered/Resolved]
  - Respiratory failure [Recovered/Resolved]
  - Aphasia [Recovering/Resolving]
  - CSF cell count increased [Recovering/Resolving]
  - Headache [Unknown]
  - Meningitis [Unknown]
  - Neutrophil count decreased [Unknown]
  - C-reactive protein increased [Unknown]
  - Tachycardia [Unknown]
  - Diarrhoea [Unknown]
  - Hypogammaglobulinaemia [Not Recovered/Not Resolved]
  - Hypertension [Recovered/Resolved]
  - Nausea [Unknown]
  - Leukoencephalopathy [Recovered/Resolved]
  - Product use in unapproved indication [Unknown]
  - Oedema peripheral [Recovered/Resolved]
  - Cytokine release syndrome [Recovered/Resolved]
  - Concomitant disease aggravated [Recovered/Resolved]

NARRATIVE: CASE EVENT DATE: 20200601
